FAERS Safety Report 22157867 (Version 1)
Quarter: 2023Q1

REPORT INFORMATION
  Report Type: Report from Study
  Country: FR (occurrence: FR)
  Receive Date: 20230330
  Receipt Date: 20230330
  Transmission Date: 20230418
  Serious: Yes (Other)
  Sender: FDA-Public Use
  Company Number: FR-TEVA-2023-FR-2870804

PATIENT

DRUGS (6)
  1. CISPLATIN [Suspect]
     Active Substance: CISPLATIN
     Indication: Squamous cell carcinoma
     Dosage: 75 MG/M2 ON DAY 1 (FIRST PROTOCOL) EVERY 21 DAYS
     Route: 065
  2. CISPLATIN [Suspect]
     Active Substance: CISPLATIN
     Dosage: 40 MG/M2 ON DAY 1 (SECOND PROTOCOL) EVERY 14 DAYS
     Route: 065
  3. FLUOROURACIL [Suspect]
     Active Substance: FLUOROURACIL
     Indication: Squamous cell carcinoma
     Dosage: 750 MG/M2  CONTINUOUS INFUSION FOR 5 DAYS (FIRST PROTOCOL) , EVERY 21 DAYS
     Route: 065
  4. FLUOROURACIL [Suspect]
     Active Substance: FLUOROURACIL
     Dosage: 1200 MG/M2 DAILY; 1200 MG/M2 PER DAY RECEIVED FOR 2 DAYS; EVERY 14 DAYS (SECOND PROTOCOL)
     Route: 065
  5. DOCETAXEL [Suspect]
     Active Substance: DOCETAXEL
     Indication: Squamous cell carcinoma
     Dosage: 75 MG/M2 ON DAY 1 (FIRST PROTOCOL) , EVERY 21 DAYS
     Route: 065
  6. DOCETAXEL [Suspect]
     Active Substance: DOCETAXEL
     Dosage: 40 MG/M2 ON DAY 1 (SECOND PROTOCOL) , EVERY 14 DAYS
     Route: 065

REACTIONS (2)
  - Neutropenia [Unknown]
  - Anaemia [Unknown]
